FAERS Safety Report 5792117-4 (Version None)
Quarter: 2008Q2

REPORT INFORMATION
  Report Type: 
  Country: None (occurrence: None)
  Receive Date: 20080626
  Receipt Date: 20080314
  Transmission Date: 20081010
  Serious: No
  Sender: FDA-Public Use
  Company Number: US-ASTRAZENECA-2008UW05221

PATIENT
  Age: 83 Year
  Sex: Female
  Weight: 61.2 kg

DRUGS (6)
  1. PULMICORT FLEXHALER [Suspect]
     Indication: ASTHMA
     Route: 055
  2. LEVOTHYROXINE SODIUM [Concomitant]
  3. CYMBALTA [Concomitant]
  4. SINGULAIR [Concomitant]
  5. VITAMINS [Concomitant]
  6. HOLISTICS [Concomitant]

REACTIONS (4)
  - COUGH [None]
  - EYE PRURITUS [None]
  - ORAL PRURITUS [None]
  - PRURITUS GENERALISED [None]
